FAERS Safety Report 4598352-5 (Version None)
Quarter: 2005Q1

REPORT INFORMATION
  Report Type: 
  Country: None (occurrence: None)
  Receive Date: 20050304
  Receipt Date: 20050221
  Transmission Date: 20050727
  Serious: Yes (Other)
  Sender: FDA-Public Use
  Company Number: 200511430US

PATIENT
  Sex: 0

DRUGS (3)
  1. KETEK [Suspect]
     Dosage: DOSE: UNK
  2. VERAPAMIL [Suspect]
     Dosage: DOSE: UNK
  3. ATENOLOL [Suspect]
     Dosage: DOSE: UNK

REACTIONS (3)
  - CARDIAC ARREST [None]
  - DRUG INTERACTION [None]
  - GENERAL PHYSICAL HEALTH DETERIORATION [None]
